FAERS Safety Report 8613971-4 (Version None)
Quarter: 2012Q3

REPORT INFORMATION
  Report Type: 
  Country: None (occurrence: None)
  Receive Date: 20120823
  Receipt Date: 20120817
  Transmission Date: 20120928
  Serious: No
  Sender: FDA-Public Use
  Company Number: US-PFIZER INC-2012186650

PATIENT
  Age: 25 Year
  Sex: Male

DRUGS (5)
  1. EFFEXOR XR [Suspect]
     Indication: DEPRESSION
     Dosage: 75 MG, QAM
     Route: 048
  2. SEROQUEL [Concomitant]
     Dosage: 100 MG, 1X/DAY, AS NEEDED
     Route: 048
  3. EFFEXOR XR [Suspect]
     Dosage: 75 MG, 2X/DAY
     Route: 048
     Dates: start: 20070808
  4. EFFEXOR XR [Suspect]
     Indication: PANIC DISORDER
     Dosage: 37.5 MG, 2X/DAY
     Route: 048
  5. CLONAZEPAM [Concomitant]
     Dosage: 1 MG, 2X/DAY, AS NEEDED
     Route: 048

REACTIONS (2)
  - DRUG INTOLERANCE [None]
  - FOOT FRACTURE [None]
